FAERS Safety Report 15395687 (Version 2)
Quarter: 2018Q4

REPORT INFORMATION
  Report Type: Spontaneous
  Country: BE (occurrence: BE)
  Receive Date: 20180918
  Receipt Date: 20181012
  Transmission Date: 20190204
  Serious: Yes (Other)
  Sender: FDA-Public Use
  Company Number: BE-JNJFOC-20180622149

PATIENT
  Age: 55 Year
  Sex: Female
  Weight: 67.5 kg

DRUGS (14)
  1. LODIXAL [Concomitant]
     Indication: ARRHYTHMIA
     Route: 048
     Dates: start: 2018
  2. STELARA [Suspect]
     Active Substance: USTEKINUMAB
     Indication: CROHN^S DISEASE
     Dosage: INTRAVENOUS DOSE
     Route: 042
     Dates: start: 20170502
  3. COLITOFALK [Concomitant]
     Active Substance: MESALAMINE
     Indication: CROHN^S DISEASE
     Route: 048
     Dates: start: 1998
  4. ESTRADIOL. [Concomitant]
     Active Substance: ESTRADIOL
     Route: 048
     Dates: start: 2017
  5. STELARA [Suspect]
     Active Substance: USTEKINUMAB
     Indication: CROHN^S DISEASE
     Route: 042
     Dates: start: 20180915
  6. BEFACT [Concomitant]
     Route: 048
     Dates: start: 2018
  7. TRANXENE [Concomitant]
     Active Substance: CLORAZEPATE DIPOTASSIUM
     Route: 048
     Dates: start: 2018
  8. LEVOTHYROXINE. [Concomitant]
     Active Substance: LEVOTHYROXINE
     Indication: HYPERTHYROIDISM
     Route: 048
     Dates: start: 2007
  9. BROMAZEPAM [Concomitant]
     Active Substance: BROMAZEPAM
     Route: 048
     Dates: start: 2018
  10. REDOMEX [Concomitant]
     Active Substance: AMITRIPTYLINE HYDROCHLORIDE
     Indication: DEPRESSION
     Route: 048
     Dates: start: 2007
  11. DAFLON [Concomitant]
     Indication: OEDEMA PERIPHERAL
     Route: 048
     Dates: start: 2017
  12. STELARA [Suspect]
     Active Substance: USTEKINUMAB
     Indication: CROHN^S DISEASE
     Route: 042
  13. STELARA [Suspect]
     Active Substance: USTEKINUMAB
     Indication: CROHN^S DISEASE
     Dosage: RE INDUCTION OF INTRAVENOUS USTEKINUMAB.
     Route: 042
     Dates: start: 20180710, end: 20180710
  14. FLUOXETINE [Concomitant]
     Active Substance: FLUOXETINE HYDROCHLORIDE
     Indication: DEPRESSION
     Route: 048
     Dates: start: 2016

REACTIONS (4)
  - Fatigue [Recovering/Resolving]
  - Angioedema [Recovered/Resolved]
  - Therapeutic response decreased [Unknown]
  - Pulmonary hypertension [Unknown]

NARRATIVE: CASE EVENT DATE: 2017
